FAERS Safety Report 20093204 (Version 1)
Quarter: 2021Q4

REPORT INFORMATION
  Report Type: Spontaneous
  Country: AU (occurrence: AU)
  Receive Date: 20211120
  Receipt Date: 20211120
  Transmission Date: 20220303
  Serious: Yes (Death, Other)
  Sender: FDA-Public Use
  Company Number: AU-NOVARTISPH-NVSC2021AU264726

PATIENT
  Age: 75 Year
  Sex: Female

DRUGS (5)
  1. SANDOSTATIN LAR DEPOT [Suspect]
     Active Substance: OCTREOTIDE ACETATE
     Indication: Neuroendocrine tumour
     Dosage: 30 MG, QMO
     Route: 065
  2. SANDOSTATIN LAR DEPOT [Suspect]
     Active Substance: OCTREOTIDE ACETATE
  3. SANDOSTATIN LAR DEPOT [Suspect]
     Active Substance: OCTREOTIDE ACETATE
  4. CAPECITABINE [Suspect]
     Active Substance: CAPECITABINE
     Indication: Product used for unknown indication
     Dosage: UNK
     Route: 065
     Dates: start: 201409, end: 201606
  5. CAPECITABINE [Suspect]
     Active Substance: CAPECITABINE
     Dosage: UNK
     Route: 065
     Dates: start: 202012

REACTIONS (20)
  - Death [Fatal]
  - Carcinoid syndrome [Unknown]
  - Alcoholism [Unknown]
  - Gastrointestinal haemorrhage [Unknown]
  - Hyperthyroidism [Unknown]
  - Cardiac disorder [Unknown]
  - Irritable bowel syndrome [Unknown]
  - Bronchospasm [Unknown]
  - Functional gastrointestinal disorder [Unknown]
  - Arthritis [Unknown]
  - Flushing [Unknown]
  - Hyperhidrosis [Unknown]
  - Asthma [Unknown]
  - Neurosis [Unknown]
  - Oedema [Unknown]
  - Anxiety [Unknown]
  - Food allergy [Unknown]
  - Abdominal distension [Unknown]
  - Abdominal pain [Unknown]
  - Diarrhoea [Unknown]

NARRATIVE: CASE EVENT DATE: 20210901
